FAERS Safety Report 25400828 (Version 1)
Quarter: 2025Q2

REPORT INFORMATION
  Report Type: Spontaneous
  Country: US (occurrence: None)
  Receive Date: 20250605
  Receipt Date: 20250605
  Transmission Date: 20250716
  Serious: Yes (Hospitalization)
  Sender: FDA-CTU
  Company Number: None

PATIENT
  Sex: Female

DRUGS (9)
  1. DIMETHYL FUMARATE [Suspect]
     Active Substance: DIMETHYL FUMARATE
     Indication: Multiple sclerosis
     Route: 048
     Dates: start: 20201016
  2. CENTRUM TAB SILVER [Concomitant]
  3. CITALOPRAM [Concomitant]
     Active Substance: CITALOPRAM
  4. CLONAZEPAM [Concomitant]
     Active Substance: CLONAZEPAM
  5. ELIQUIS [Concomitant]
     Active Substance: APIXABAN
  6. DIETARY SUPPLEMENT [Concomitant]
     Active Substance: DIETARY SUPPLEMENT
  7. ESTRADIOL [Concomitant]
     Active Substance: ESTRADIOL
  8. FERROUS SULFATE [Concomitant]
     Active Substance: FERROUS SULFATE
  9. GABAPENTIN [Concomitant]
     Active Substance: GABAPENTIN

REACTIONS (2)
  - Bladder disorder [None]
  - Urinary tract infection [None]
